FAERS Safety Report 5343295-2 (Version None)
Quarter: 2007Q2

REPORT INFORMATION
  Report Type: 
  Country: None (occurrence: None)
  Receive Date: 20070502
  Receipt Date: 20060814
  Transmission Date: 20071010
  Serious: Yes (Other)
  Sender: FDA-Public Use
  Company Number: PHEH2006US10407

PATIENT

DRUGS (3)
  1. LOTREL [Suspect]
     Dosage: VIA LACTATION
  2. COREG [Concomitant]
  3. BACLOFEN [Concomitant]

REACTIONS (2)
  - CONSTIPATION [None]
  - DRUG EXPOSURE VIA BREAST MILK [None]
